FAERS Safety Report 5626330-3 (Version None)
Quarter: 2008Q1

REPORT INFORMATION
  Report Type: 
  Country: None (occurrence: None)
  Receive Date: 20080214
  Receipt Date: 20080204
  Transmission Date: 20080703
  Serious: Yes (Hospitalization, Other)
  Sender: FDA-Public Use
  Company Number: JP-ELI_LILLY_AND_COMPANY-JP200801006427

PATIENT
  Age: 63 Year
  Sex: Male

DRUGS (4)
  1. GEMZAR [Suspect]
     Indication: PANCREATIC CARCINOMA
     Dosage: 1000 MG, UNKNOWN
     Route: 042
  2. DECADRON [Concomitant]
     Dosage: 12 MG, DAILY (1/D)
     Route: 065
  3. DECADRON [Concomitant]
     Dosage: 10 MG, DAILY (1/D)
     Route: 065
  4. MORPHINE HCL ELIXIR [Concomitant]
     Route: 048

REACTIONS (5)
  - DRUG WITHDRAWAL SYNDROME [None]
  - DYSGEUSIA [None]
  - IRRITABILITY [None]
  - LIBIDO INCREASED [None]
  - SOMNOLENCE [None]
